FAERS Safety Report 15263856 (Version 1)
Quarter: 2018Q3

REPORT INFORMATION
  Report Type: Spontaneous
  Country: DE (occurrence: DE)
  Receive Date: 20180810
  Receipt Date: 20180810
  Transmission Date: 20181010
  Serious: Yes (Hospitalization, Other)
  Sender: FDA-Public Use
  Company Number: DE-MERCK KGAA-2053530

PATIENT
  Age: 55 Year
  Sex: Female

DRUGS (2)
  1. NOVOTHYROX [Suspect]
     Active Substance: LEVOTHYROXINE SODIUM
     Indication: AUTOIMMUNE THYROIDITIS
  2. NOVOTHYRAL [Suspect]
     Active Substance: LEVOTHYROXINE SODIUM\LIOTHYRONINE SODIUM
     Dates: start: 20180801

REACTIONS (17)
  - Constipation [None]
  - Angina pectoris [None]
  - Chest pain [None]
  - Metabolic disorder [None]
  - Blood thyroid stimulating hormone decreased [None]
  - Pain in jaw [None]
  - Malnutrition [None]
  - Tri-iodothyronine decreased [None]
  - Unevaluable event [None]
  - Wrong drug administered [None]
  - Discomfort [Recovering/Resolving]
  - Thyroxine decreased [None]
  - Feeding disorder [None]
  - Underweight [None]
  - Drug dose omission [None]
  - Abdominal distension [None]
  - Abdominal pain [None]

NARRATIVE: CASE EVENT DATE: 201807
